FAERS Safety Report 12119542 (Version 1)
Quarter: 2016Q1

REPORT INFORMATION
  Report Type: Spontaneous
  Country: US (occurrence: None)
  Receive Date: 20160225
  Receipt Date: 20160225
  Transmission Date: 20160526
  Serious: Yes (Hospitalization)
  Sender: FDA-Public Use
  Company Number: None

PATIENT
  Age: 69 Year
  Sex: Female
  Weight: 40.51 kg

DRUGS (2)
  1. CISPLATIN. [Suspect]
     Active Substance: CISPLATIN
     Dates: end: 20120305
  2. LISINOPRIL. [Concomitant]
     Active Substance: LISINOPRIL

REACTIONS (7)
  - Malnutrition [None]
  - Hydronephrosis [None]
  - Decreased appetite [None]
  - Dehydration [None]
  - Diarrhoea [None]
  - Hyperkalaemia [None]
  - Electrolyte imbalance [None]

NARRATIVE: CASE EVENT DATE: 20120416
